FAERS Safety Report 5678493-1 (Version None)
Quarter: 2008Q1

REPORT INFORMATION
  Report Type: 
  Country: None (occurrence: None)
  Receive Date: 20080325
  Receipt Date: 20080319
  Transmission Date: 20080703
  Serious: Yes (Death, Other)
  Sender: FDA-Public Use
  Company Number: FR-BRISTOL-MYERS SQUIBB COMPANY-14121396

PATIENT
  Age: 82 Year
  Sex: Male

DRUGS (4)
  1. LOPRIL TABS 25 MG [Suspect]
  2. TENORMIN [Suspect]
  3. LASILIX [Suspect]
  4. NEXAVAR [Suspect]
     Indication: HEPATIC NEOPLASM MALIGNANT
     Dates: start: 20080125

REACTIONS (3)
  - APHASIA [None]
  - DEATH [None]
  - MALAISE [None]
